FAERS Safety Report 18094092 (Version 1)
Quarter: 2020Q3

REPORT INFORMATION
  Report Type: Report from Study
  Country: IT (occurrence: IT)
  Receive Date: 20200730
  Receipt Date: 20200730
  Transmission Date: 20201103
  Serious: Yes (Hospitalization)
  Sender: FDA-Public Use
  Company Number: IT-PFIZER INC-2020288239

PATIENT
  Age: 88 Year
  Sex: Female

DRUGS (6)
  1. CONGESCOR [Concomitant]
     Active Substance: BISOPROLOL
  2. XANAX [Concomitant]
     Active Substance: ALPRAZOLAM
  3. EZEQUA [Concomitant]
     Active Substance: DULOXETINE HYDROCHLORIDE
  4. ESIDREX [Concomitant]
     Active Substance: HYDROCHLOROTHIAZIDE
  5. TAVOR (LORAZEPAM) [Suspect]
     Active Substance: LORAZEPAM
     Dosage: 2.5 MG
     Route: 048
  6. QUENTIAX [Concomitant]
     Active Substance: QUETIAPINE FUMARATE

REACTIONS (2)
  - Presyncope [Not Recovered/Not Resolved]
  - Drug abuse [Not Recovered/Not Resolved]

NARRATIVE: CASE EVENT DATE: 20200616
